FAERS Safety Report 7439215-7 (Version None)
Quarter: 2011Q2

REPORT INFORMATION
  Report Type: 
  Country: None (occurrence: None)
  Receive Date: 20110427
  Receipt Date: 20110403
  Transmission Date: 20111010
  Serious: Yes (Hospitalization)
  Sender: FDA-Public Use
  Company Number: US-BAYER-2011-022019

PATIENT
  Age: 27 Year
  Sex: Female
  Weight: 96.145 kg

DRUGS (6)
  1. YAZ [Suspect]
     Indication: ORAL CONTRACEPTION
     Dosage: UNK
     Route: 048
     Dates: start: 20080810, end: 20090317
  2. PRILOSEC [Concomitant]
     Dosage: 20 MG, QD
     Route: 048
  3. NON-STEROIDAL ANTIINFLAMMATORY [Concomitant]
     Dosage: UNK UNK, PRN
     Route: 048
  4. BACTRIM DS [Concomitant]
     Dosage: 800 MG, UNK
  5. CELEBREX [Concomitant]
     Dosage: 200 MG, QD
     Route: 048
  6. BACTRIM DS [Concomitant]
     Dosage: 160 MG, UNK
     Route: 048

REACTIONS (7)
  - THROMBOSIS [None]
  - PAIN [None]
  - ABASIA [None]
  - INJURY [None]
  - OEDEMA PERIPHERAL [None]
  - DEEP VEIN THROMBOSIS [None]
  - PAIN IN EXTREMITY [None]
